FAERS Safety Report 13158990 (Version 2)
Quarter: 2017Q1

REPORT INFORMATION
  Report Type: Spontaneous
  Country: CM (occurrence: CM)
  Receive Date: 20170127
  Receipt Date: 20170202
  Transmission Date: 20170428
  Serious: Yes (Hospitalization, Other)
  Sender: FDA-Public Use
  Company Number: CM-GLAXOSMITHKLINE-CM2017010849

PATIENT
  Age: 43 Year
  Sex: Female

DRUGS (1)
  1. DICLOFENAC [Suspect]
     Active Substance: DICLOFENAC
     Indication: PAIN
     Dates: start: 20160114, end: 20160115

REACTIONS (1)
  - Raynaud^s phenomenon [Recovering/Resolving]
